FAERS Safety Report 4603600-9 (Version None)
Quarter: 2005Q1

REPORT INFORMATION
  Report Type: 
  Country: None (occurrence: None)
  Receive Date: 20050308
  Receipt Date: 20050221
  Transmission Date: 20050727
  Serious: Yes (Hospitalization)
  Sender: FDA-Public Use
  Company Number: 212817

PATIENT
  Age: 67 Year
  Sex: Female
  Weight: 60 kg

DRUGS (1)
  1. HERCEPTIN [Suspect]
     Indication: BREAST CANCER
     Dosage: 240 MG, INTRAVENOUS
     Route: 042
     Dates: start: 20041122, end: 20041122

REACTIONS (5)
  - ANAPHYLACTIC REACTION [None]
  - CHILLS [None]
  - DIARRHOEA [None]
  - NAUSEA [None]
  - VOMITING [None]
